FAERS Safety Report 4938824-4 (Version None)
Quarter: 2006Q1

REPORT INFORMATION
  Report Type: 
  Country: None (occurrence: None)
  Receive Date: 20060306
  Receipt Date: 20060221
  Transmission Date: 20060701
  Serious: Yes (Hospitalization, Other)
  Sender: FDA-Public Use
  Company Number: 2006027616

PATIENT
  Age: 58 Year
  Sex: Male

DRUGS (1)
  1. FELDENE [Suspect]
     Indication: ILL-DEFINED DISORDER

REACTIONS (4)
  - BLOOD PRESSURE DECREASED [None]
  - DIZZINESS [None]
  - GASTROINTESTINAL HAEMORRHAGE [None]
  - NASOPHARYNGITIS [None]
